FAERS Safety Report 8520746-3 (Version None)
Quarter: 2012Q3

REPORT INFORMATION
  Report Type: 
  Country: None (occurrence: None)
  Receive Date: 20120719
  Receipt Date: 20120629
  Transmission Date: 20120928
  Serious: Yes (Death, Life-Threatening, Hospitalization, Other)
  Sender: FDA-Public Use
  Company Number: HR-SANOFI-AVENTIS-200816799GDDC

PATIENT
  Age: 74 Year
  Sex: Male

DRUGS (16)
  1. OMEGA-3 POLYUNSATURATED FATTY ACID [Suspect]
     Route: 048
     Dates: start: 20040421
  2. BISOPROLOL FUMARATE [Concomitant]
     Indication: CORONARY ARTERY DISEASE
     Dates: start: 20070101, end: 20080601
  3. ISOSORBIDE MONONITRATE [Concomitant]
     Indication: CORONARY ARTERY DISEASE
     Dates: start: 19980101, end: 20080601
  4. OPTIPEN [Suspect]
     Indication: DIABETES MELLITUS
  5. RAMIPRIL [Concomitant]
     Indication: MYOCARDIAL INFARCTION
     Dates: start: 19970101, end: 20080601
  6. ACETYLSALICYLIC ACID SRT [Concomitant]
     Indication: MYOCARDIAL INFARCTION
     Dates: start: 19990101, end: 20080601
  7. ISOSORBIDE DINITRATE [Concomitant]
     Dates: start: 19980101, end: 20080601
  8. FUROSEMIDE [Concomitant]
     Dates: start: 20040801, end: 20080601
  9. POTASSIUM CHLORIDE [Concomitant]
     Indication: NUTRITIONAL SUPPORT
     Dates: start: 20040101, end: 20080601
  10. AMIODARONE HCL [Concomitant]
     Dates: start: 20061001, end: 20080601
  11. ISOSORBIDE MONONITRATE [Concomitant]
     Indication: ANGINA PECTORIS
     Dates: start: 19980101, end: 20080601
  12. LEVOTHYROXINE SODIUM [Concomitant]
     Indication: HYPOTHYROIDISM
     Dates: start: 20071201, end: 20080601
  13. BISOPROLOL FUMARATE [Concomitant]
     Indication: ANGINA PECTORIS
     Dates: start: 20070101, end: 20080601
  14. LANTUS [Suspect]
     Indication: DIABETES MELLITUS
     Dosage: DOSE:2 UNIT(S)
     Route: 058
     Dates: start: 20040421
  15. GLIQUIDONE [Concomitant]
     Dates: start: 20010401, end: 20080401
  16. THEOPHYLLINE [Concomitant]
     Indication: CHRONIC OBSTRUCTIVE PULMONARY DISEASE
     Dates: start: 20070301, end: 20080601

REACTIONS (1)
  - LUNG NEOPLASM MALIGNANT [None]
